FAERS Safety Report 10463783 (Version 3)
Quarter: 2014Q3

REPORT INFORMATION
  Report Type: Report from Study
  Country: IN (occurrence: IN)
  Receive Date: 20140919
  Receipt Date: 20140929
  Transmission Date: 20150326
  Serious: Yes (Hospitalization, Other)
  Sender: FDA-Public Use
  Company Number: PHHY2014IN048659

PATIENT
  Age: 41 Year
  Sex: Male
  Weight: 65.7 kg

DRUGS (20)
  1. OMNACORTIL//PREDNISOLONE [Concomitant]
     Dosage: 30 MG, QD
  2. CERTICAN [Concomitant]
     Active Substance: EVEROLIMUS
     Dosage: 0.5 MG, BID
  3. INH [Concomitant]
     Active Substance: ISONIAZID
     Dosage: 300 MG, QD
     Dates: start: 20140418
  4. VD FIT [Concomitant]
     Dosage: 6000 U, QW
  5. MYCOPHENOLIC ACID [Suspect]
     Active Substance: MYCOPHENOLIC ACID
     Indication: IMMUNOSUPPRESSION
     Dosage: 540 MG, BID
     Route: 048
     Dates: start: 20130923
  6. MYCOPHENOLIC ACID [Suspect]
     Active Substance: MYCOPHENOLIC ACID
     Dosage: UNK
  7. PROGRAF [Suspect]
     Active Substance: TACROLIMUS\TACROLIMUS ANHYDROUS
     Indication: IMMUNOSUPPRESSION
     Dosage: 0.5 MG, BID
     Dates: start: 20130925
  8. PROGRAF [Suspect]
     Active Substance: TACROLIMUS\TACROLIMUS ANHYDROUS
     Dosage: 2.5 MG, BID
  9. OMNACORTIL//PREDNISOLONE [Concomitant]
     Dosage: 7.5 MG, UNK
  10. OMNACORTIL//PREDNISOLONE [Concomitant]
     Dosage: 20 MG, QD
  11. OMNACORTIL//PREDNISOLONE [Concomitant]
     Dosage: 10 MG, QD
  12. PROGRAF [Suspect]
     Active Substance: TACROLIMUS\TACROLIMUS ANHYDROUS
     Dosage: 0.25 MG, QD
  13. OMNACORTIL//PREDNISOLONE [Concomitant]
     Dosage: 25 MG, QD
  14. OMNACORTIL//PREDNISOLONE [Concomitant]
     Dosage: 5 MG, QD
  15. OMNACORTIL//PREDNISOLONE [Concomitant]
     Dosage: 15 MG, QD
  16. OMNACORTIL//PREDNISOLONE [Concomitant]
     Dosage: 7.5 MG, QD
  17. BENADON [Concomitant]
     Active Substance: PYRIDOXINE HYDROCHLORIDE
     Dosage: 40 MG, QD
  18. MYCOPHENOLIC ACID [Suspect]
     Active Substance: MYCOPHENOLIC ACID
     Dosage: 360 MG, UNK
  19. OMNACORTIL//PREDNISOLONE [Concomitant]
     Dosage: 10 MG, UNK
  20. SEPTRAN [Concomitant]
     Dosage: UNK

REACTIONS (11)
  - Kidney transplant rejection [Recovered/Resolved]
  - Blood glucose increased [Unknown]
  - Blood sodium decreased [Unknown]
  - Immunosuppressant drug level decreased [Unknown]
  - Blood potassium decreased [Unknown]
  - Platelet count decreased [Unknown]
  - Tubulointerstitial nephritis [Recovered/Resolved]
  - Blood creatinine increased [Not Recovered/Not Resolved]
  - Granuloma [Recovering/Resolving]
  - Haemoglobin decreased [Unknown]
  - Nephritis [Recovering/Resolving]

NARRATIVE: CASE EVENT DATE: 20131231
